FAERS Safety Report 23580509 (Version 2)
Quarter: 2024Q1

REPORT INFORMATION
  Report Type: Spontaneous
  Country: US (occurrence: US)
  Receive Date: 20240229
  Receipt Date: 20240304
  Transmission Date: 20240409
  Serious: Yes (Other)
  Sender: FDA-Public Use
  Company Number: US-BRISTOL-MYERS SQUIBB COMPANY-2024-029352

PATIENT
  Age: 78 Year
  Sex: Female
  Weight: 72.57 kg

DRUGS (1)
  1. ORENCIA [Suspect]
     Active Substance: ABATACEPT
     Indication: Rheumatoid arthritis
     Dosage: DOSE : 125MG/ML;     FREQ : ONCE A WEEK, EVERY 7 DAYS
     Route: 058
     Dates: start: 202102

REACTIONS (4)
  - Dementia [Unknown]
  - Treatment noncompliance [Unknown]
  - Device failure [Unknown]
  - Product dose omission issue [Unknown]

NARRATIVE: CASE EVENT DATE: 20240221
